FAERS Safety Report 4462351-4 (Version None)
Quarter: 2004Q3

REPORT INFORMATION
  Report Type: 
  Country: None (occurrence: None)
  Receive Date: 20040924
  Receipt Date: 20040914
  Transmission Date: 20050211
  Serious: Yes (Life-Threatening, Disabling, Other)
  Sender: FDA-Public Use
  Company Number: 2004065552

PATIENT
  Sex: Male

DRUGS (2)
  1. NEURONTIN [Suspect]
     Indication: NEUROPATHY
  2. NEURONTIN [Suspect]
     Indication: PAIN

REACTIONS (6)
  - DEFORMITY [None]
  - DRUG INEFFECTIVE [None]
  - INJURY [None]
  - PAIN [None]
  - PERFORMANCE STATUS DECREASED [None]
  - SUICIDE ATTEMPT [None]
